FAERS Safety Report 6707825-8 (Version None)
Quarter: 2010Q2

REPORT INFORMATION
  Report Type: 
  Country: None (occurrence: None)
  Receive Date: 20100503
  Receipt Date: 20090319
  Transmission Date: 20101027
  Serious: No
  Sender: FDA-Public Use
  Company Number: US-ASTRAZENECA-2009UW06457

PATIENT
  Age: 65 Year
  Sex: Male

DRUGS (5)
  1. NEXIUM [Suspect]
     Indication: GASTROOESOPHAGEAL REFLUX DISEASE
     Route: 048
  2. LUPRON DEPOT [Concomitant]
  3. SIMVASTATIN [Concomitant]
  4. ALTACE [Concomitant]
  5. VICODIN [Concomitant]

REACTIONS (13)
  - ABDOMINAL DISTENSION [None]
  - BOWEL MOVEMENT IRREGULARITY [None]
  - CHEST PAIN [None]
  - EAR PAIN [None]
  - FATIGUE [None]
  - FLUSHING [None]
  - HOT FLUSH [None]
  - NAUSEA [None]
  - POLYP [None]
  - RHINITIS [None]
  - SINUSITIS [None]
  - SLEEP APNOEA SYNDROME [None]
  - TINNITUS [None]
